FAERS Safety Report 11403851 (Version 1)
Quarter: 2015Q3

REPORT INFORMATION
  Report Type: Spontaneous
  Country: US (occurrence: US)
  Receive Date: 20150821
  Receipt Date: 20150821
  Transmission Date: 20151125
  Serious: Yes (Hospitalization, Other)
  Sender: FDA-Public Use
  Company Number: US-TEVA-587490USA

PATIENT
  Age: 64 Year
  Sex: Male
  Weight: 81.72 kg

DRUGS (2)
  1. WARFARIN [Suspect]
     Active Substance: WARFARIN
     Indication: THROMBOSIS PROPHYLAXIS
     Dosage: 4 MILLIGRAM DAILY;
     Route: 048
  2. VFEND [Suspect]
     Active Substance: VORICONAZOLE
     Indication: INFECTION PROPHYLAXIS
     Dosage: 600 MILLIGRAM DAILY; TWO 50 MG TABLETS AND ONE 200 MG TABLET
     Route: 048

REACTIONS (10)
  - Contusion [Unknown]
  - Peripheral swelling [Unknown]
  - Drug dispensing error [Unknown]
  - Abasia [Recovering/Resolving]
  - Pain [Unknown]
  - Overdose [Unknown]
  - Haematoma [Recovering/Resolving]
  - Skin warm [Unknown]
  - International normalised ratio increased [Unknown]
  - Loss of control of legs [Recovering/Resolving]

NARRATIVE: CASE EVENT DATE: 2015
